FAERS Safety Report 11643380 (Version 1)
Quarter: 2015Q4

REPORT INFORMATION
  Report Type: Spontaneous
  Country: JP (occurrence: JP)
  Receive Date: 20151020
  Receipt Date: 20151020
  Transmission Date: 20160304
  Serious: Yes (Hospitalization, Other)
  Sender: FDA-Public Use
  Company Number: JP-AMGEN-JPNOT2015109683

PATIENT
  Age: 56 Year
  Sex: Male

DRUGS (56)
  1. GRAN [Suspect]
     Active Substance: FILGRASTIM
     Dosage: 300 MUG, QD
     Route: 041
     Dates: start: 20150130, end: 20150130
  2. GRAN [Suspect]
     Active Substance: FILGRASTIM
     Dosage: 300 MUG, QD
     Route: 041
     Dates: start: 20150218, end: 20150218
  3. RANIMUSTINE [Suspect]
     Active Substance: RANIMUSTINE
     Dosage: UNK
     Route: 051
     Dates: end: 20150331
  4. CARBOPLATIN. [Suspect]
     Active Substance: CARBOPLATIN
     Dosage: UNK
     Route: 065
     Dates: start: 20150318, end: 20150320
  5. GRAN [Suspect]
     Active Substance: FILGRASTIM
     Dosage: 300 MUG, QD
     Route: 065
     Dates: start: 20150128, end: 20150128
  6. GRAN [Suspect]
     Active Substance: FILGRASTIM
     Dosage: 300 MUG, QD
     Route: 041
     Dates: start: 20150310, end: 20150310
  7. ADRIACIN [Suspect]
     Active Substance: DOXORUBICIN HYDROCHLORIDE
     Dosage: UNK
     Route: 051
     Dates: start: 20150217
  8. PREDNISOLONE. [Suspect]
     Active Substance: PREDNISOLONE
     Dosage: 40 MG, QD
     Route: 048
     Dates: end: 20150331
  9. CARBOPLATIN. [Suspect]
     Active Substance: CARBOPLATIN
     Indication: ADULT T-CELL LYMPHOMA/LEUKAEMIA
     Dosage: UNK
     Route: 065
     Dates: start: 20150129, end: 20150129
  10. FOSCARNET SODIUM. [Suspect]
     Active Substance: FOSCARNET SODIUM
     Indication: CYTOMEGALOVIRUS INFECTION
     Dosage: UNK
     Route: 051
     Dates: start: 20150314, end: 20150421
  11. ELCATONIN [Concomitant]
     Active Substance: ELCATONIN
     Dosage: UNK
     Route: 065
  12. CYLOCIDE [Concomitant]
     Active Substance: CYTARABINE
     Dosage: UNK
     Route: 065
  13. EMEND [Concomitant]
     Active Substance: APREPITANT
     Dosage: UNK
     Route: 048
  14. GRAN [Suspect]
     Active Substance: FILGRASTIM
     Dosage: 300 MUG, QD
     Route: 041
     Dates: start: 20150304, end: 20150304
  15. GRAN [Suspect]
     Active Substance: FILGRASTIM
     Dosage: 300 MUG, QD
     Route: 041
     Dates: start: 20150312, end: 20150312
  16. DENOSINE                           /00784201/ [Suspect]
     Active Substance: GANCICLOVIR
     Indication: CYTOMEGALOVIRUS CHORIORETINITIS
     Dosage: 200 MG, BID
     Route: 041
     Dates: start: 20150218, end: 20150224
  17. RANIMUSTINE [Suspect]
     Active Substance: RANIMUSTINE
     Dosage: UNK
     Route: 051
     Dates: start: 20150318, end: 20150320
  18. PREDNISOLONE. [Suspect]
     Active Substance: PREDNISOLONE
     Indication: ADULT T-CELL LYMPHOMA/LEUKAEMIA
     Dosage: 40 MG, QD
     Route: 048
     Dates: start: 20150129, end: 20150129
  19. VINCRISTINE SULFATE. [Suspect]
     Active Substance: VINCRISTINE SULFATE
     Dosage: UNK
     Route: 065
     Dates: start: 20150217, end: 20150217
  20. VINCRISTINE SULFATE. [Suspect]
     Active Substance: VINCRISTINE SULFATE
     Dosage: UNK
     Route: 065
     Dates: start: 20150318, end: 20150320
  21. GRAN [Suspect]
     Active Substance: FILGRASTIM
     Dosage: 300 MUG, QD
     Route: 041
     Dates: start: 20150211, end: 20150211
  22. GRAN [Suspect]
     Active Substance: FILGRASTIM
     Dosage: 300 MUG, QD
     Route: 041
     Dates: start: 20150308, end: 20150308
  23. ADRIACIN [Suspect]
     Active Substance: DOXORUBICIN HYDROCHLORIDE
     Indication: ADULT T-CELL LYMPHOMA/LEUKAEMIA
     Dosage: UNK
     Route: 051
     Dates: start: 20150129
  24. ADRIACIN [Suspect]
     Active Substance: DOXORUBICIN HYDROCHLORIDE
     Dosage: UNK
     Route: 051
     Dates: end: 20150331
  25. RANIMUSTINE [Suspect]
     Active Substance: RANIMUSTINE
     Indication: ADULT T-CELL LYMPHOMA/LEUKAEMIA
     Dosage: UNK
     Route: 051
     Dates: start: 20150129, end: 20150129
  26. CYCLOPHOSPHAMIDE MONOHYDRATE [Suspect]
     Active Substance: CYCLOPHOSPHAMIDE
     Indication: ADULT T-CELL LYMPHOMA/LEUKAEMIA
     Dosage: UNK
     Route: 065
     Dates: start: 20150129, end: 20150129
  27. CYCLOPHOSPHAMIDE MONOHYDRATE [Suspect]
     Active Substance: CYCLOPHOSPHAMIDE
     Dosage: UNK
     Route: 065
     Dates: start: 20150217, end: 20150217
  28. CYCLOPHOSPHAMIDE MONOHYDRATE [Suspect]
     Active Substance: CYCLOPHOSPHAMIDE
     Dosage: UNK
     Route: 065
     Dates: start: 20150318, end: 20150320
  29. VINDESINE SULFATE [Suspect]
     Active Substance: VINDESINE SULFATE
     Dosage: UNK
     Route: 065
     Dates: start: 20150217, end: 20150217
  30. VINDESINE SULFATE [Suspect]
     Active Substance: VINDESINE SULFATE
     Dosage: UNK
     Route: 065
     Dates: start: 20150318, end: 20150320
  31. GRAN [Suspect]
     Active Substance: FILGRASTIM
     Dosage: 300 MUG, QD
     Route: 041
     Dates: start: 20150223, end: 20150223
  32. GRAN [Suspect]
     Active Substance: FILGRASTIM
     Dosage: 300 MUG, QD
     Route: 041
     Dates: start: 20150316, end: 20150316
  33. RANIMUSTINE [Suspect]
     Active Substance: RANIMUSTINE
     Dosage: UNK
     Route: 051
     Dates: start: 20150217, end: 20150217
  34. PREDNISOLONE. [Suspect]
     Active Substance: PREDNISOLONE
     Dosage: 40 MG, QD
     Route: 048
     Dates: start: 20150217, end: 20150217
  35. PREDNISOLONE. [Suspect]
     Active Substance: PREDNISOLONE
     Dosage: 40 MG, QD
     Route: 048
     Dates: start: 20150318, end: 20150320
  36. VINCRISTINE SULFATE. [Suspect]
     Active Substance: VINCRISTINE SULFATE
     Indication: ADULT T-CELL LYMPHOMA/LEUKAEMIA
     Dosage: UNK
     Route: 065
     Dates: start: 20150129, end: 20150129
  37. VINDESINE SULFATE [Suspect]
     Active Substance: VINDESINE SULFATE
     Indication: LEUKAEMIA
     Dosage: UNK
     Route: 065
     Dates: start: 20150129, end: 20150129
  38. ETOPOSIDE. [Suspect]
     Active Substance: ETOPOSIDE
     Indication: ADULT T-CELL LYMPHOMA/LEUKAEMIA
     Dosage: UNK
     Route: 065
     Dates: start: 20150129, end: 20150129
  39. ETOPOSIDE. [Suspect]
     Active Substance: ETOPOSIDE
     Dosage: UNK
     Route: 065
     Dates: start: 20150217, end: 20150217
  40. CASPOFUNGIN ACETATE [Suspect]
     Active Substance: CASPOFUNGIN ACETATE
     Indication: ASPERGILLOMA
     Dosage: 50 MG, QD
     Route: 041
     Dates: start: 20141009, end: 20141104
  41. CALCICOL [Concomitant]
     Active Substance: CALCIUM GLUCONATE
     Dosage: UNK
     Route: 065
  42. PREDOPA                            /00360702/ [Concomitant]
     Dosage: UNK
     Route: 065
  43. ALOXI [Concomitant]
     Active Substance: PALONOSETRON HYDROCHLORIDE
     Dosage: UNK
     Route: 065
  44. ADRIACIN [Suspect]
     Active Substance: DOXORUBICIN HYDROCHLORIDE
     Dosage: UNK
     Route: 051
     Dates: start: 20150318, end: 20150320
  45. ETOPOSIDE. [Suspect]
     Active Substance: ETOPOSIDE
     Dosage: UNK
     Route: 065
     Dates: start: 20150318, end: 20150320
  46. CARBOPLATIN. [Suspect]
     Active Substance: CARBOPLATIN
     Dosage: UNK
     Route: 065
     Dates: start: 20150217, end: 20150217
  47. RASURITEK [Concomitant]
     Active Substance: RASBURICASE
     Dosage: UNK
     Route: 065
  48. NEUTROGIN [Concomitant]
     Active Substance: LENOGRASTIM
     Dosage: UNK
     Route: 065
  49. POTASSIUM CHLORIDE. [Concomitant]
     Active Substance: POTASSIUM CHLORIDE
     Dosage: UNK
     Route: 065
  50. SODIUM BICARBONATE. [Concomitant]
     Active Substance: SODIUM BICARBONATE
     Dosage: UNK
     Route: 065
  51. GRAN [Suspect]
     Active Substance: FILGRASTIM
     Indication: NEUTROPENIA
     Dosage: 300 MUG, QD
     Route: 065
     Dates: start: 20150126, end: 20150126
  52. GRAN [Suspect]
     Active Substance: FILGRASTIM
     Dosage: 300 MUG, QD
     Route: 041
     Dates: start: 20150314, end: 20150314
  53. DENOSINE                           /00784201/ [Suspect]
     Active Substance: GANCICLOVIR
     Dosage: 200 MG, BID
     Route: 041
     Dates: start: 20150224, end: 20150313
  54. ASPARA POTASSIUM [Concomitant]
     Active Substance: POTASSIUM ASPARTATE
     Dosage: UNK
     Route: 065
  55. FUROSEMIDE. [Concomitant]
     Active Substance: FUROSEMIDE
     Dosage: UNK
     Route: 065
  56. PRIMPERAN [Concomitant]
     Active Substance: METOCLOPRAMIDE HYDROCHLORIDE
     Dosage: UNK
     Route: 065

REACTIONS (2)
  - Bone marrow failure [Recovering/Resolving]
  - Drug resistance [Unknown]

NARRATIVE: CASE EVENT DATE: 20150223
